FAERS Safety Report 15812073 (Version 6)
Quarter: 2019Q1

REPORT INFORMATION
  Report Type: Spontaneous
  Country: JP (occurrence: JP)
  Receive Date: 20190111
  Receipt Date: 20190212
  Transmission Date: 20190417
  Serious: Yes (Hospitalization)
  Sender: FDA-Public Use
  Company Number: JP-DSJP-DSJ-2019-100632

PATIENT

DRUGS (9)
  1. PRAVASTATIN SODIUM. [Concomitant]
     Active Substance: PRAVASTATIN SODIUM
     Indication: HYPERCHOLESTEROLAEMIA
     Dosage: 10 MG, QD
     Route: 048
     Dates: start: 2001, end: 20190107
  2. BENIDIPINE HYDROCHLORIDE [Concomitant]
     Active Substance: BENIDIPINE HYDROCHLORIDE
     Indication: HYPERTENSION
     Dosage: 4 MG, BID
     Route: 048
     Dates: start: 20180426, end: 20190107
  3. TULOBUTEROL [Concomitant]
     Active Substance: TULOBUTEROL
     Indication: ASTHMA
     Dosage: 2 MG, QD
     Route: 050
     Dates: start: 20170307
  4. TELEMINSOFT [Concomitant]
     Active Substance: BISACODYL
     Indication: CONSTIPATION
     Dosage: 10 MG, QD
     Route: 050
     Dates: start: 20180627, end: 20190107
  5. LOXONIN [Concomitant]
     Active Substance: LOXOPROFEN SODIUM
     Indication: SPINAL COMPRESSION FRACTURE
     Dosage: 100 MG, QD
     Route: 050
     Dates: start: 20181217, end: 20190106
  6. PREDONINE [Concomitant]
     Active Substance: PREDNISOLONE
     Indication: CHRONIC KIDNEY DISEASE
     Dosage: 2.5 MG, QD
     Route: 048
     Dates: start: 20180517, end: 20190107
  7. LIXIANA OD TABLETS 30MG [Suspect]
     Active Substance: EDOXABAN TOSYLATE
     Indication: ATRIAL FIBRILLATION
     Dosage: 30 MG, QD
     Route: 048
     Dates: start: 20181002, end: 20190107
  8. IFENPRODIL TARTRATE [Concomitant]
     Active Substance: IFENPRODIL TARTRATE
     Indication: VERTIGO POSITIONAL
     Dosage: 20 MG, TID
     Route: 048
     Dates: start: 20180725, end: 20190107
  9. BETAHISTINE MESILATE [Concomitant]
     Active Substance: BETAHISTINE MESILATE
     Indication: VERTIGO POSITIONAL
     Dosage: 6 MG, TID
     Route: 048
     Dates: start: 20180503, end: 20190107

REACTIONS (2)
  - Interstitial lung disease [Recovering/Resolving]
  - Anaemia [Recovering/Resolving]

NARRATIVE: CASE EVENT DATE: 20190107
